FAERS Safety Report 10075476 (Version 1)
Quarter: 2014Q2

REPORT INFORMATION
  Report Type: Report from Study
  Country: US (occurrence: US)
  Receive Date: 20140414
  Receipt Date: 20140414
  Transmission Date: 20141212
  Serious: Yes (Hospitalization, Other)
  Sender: FDA-Public Use
  Company Number: US-JNJFOC-20140404820

PATIENT
  Sex: Male
  Weight: 90.27 kg

DRUGS (1)
  1. ZYTIGA [Suspect]
     Indication: NEOPLASM MALIGNANT
     Route: 048
     Dates: end: 20140403

REACTIONS (2)
  - Metastatic neoplasm [Not Recovered/Not Resolved]
  - Cardiac valve disease [Not Recovered/Not Resolved]
